FAERS Safety Report 19959149 (Version 1)
Quarter: 2021Q4

REPORT INFORMATION
  Report Type: Spontaneous
  Country: US (occurrence: US)
  Receive Date: 20211015
  Receipt Date: 20211015
  Transmission Date: 20220303
  Serious: No
  Sender: FDA-Public Use
  Company Number: 2021A770160

PATIENT
  Age: 83 Year
  Sex: Female

DRUGS (4)
  1. SEROQUEL [Interacting]
     Active Substance: QUETIAPINE FUMARATE
     Route: 048
  2. NUPLAZID [Interacting]
     Active Substance: PIMAVANSERIN TARTRATE
     Indication: Hallucination
     Route: 065
     Dates: start: 202109
  3. NUPLAZID [Interacting]
     Active Substance: PIMAVANSERIN TARTRATE
     Indication: Delusion
     Route: 065
     Dates: start: 202109
  4. NUPLAZID [Interacting]
     Active Substance: PIMAVANSERIN TARTRATE
     Indication: Parkinson^s disease psychosis
     Route: 065
     Dates: start: 202109

REACTIONS (4)
  - Drug interaction [Unknown]
  - Malaise [Unknown]
  - Hallucination [Unknown]
  - Crying [Unknown]
